FAERS Safety Report 15525720 (Version 5)
Quarter: 2022Q1

REPORT INFORMATION
  Report Type: Spontaneous
  Country: JP (occurrence: JP)
  Receive Date: 20181018
  Receipt Date: 20220329
  Transmission Date: 20220423
  Serious: Yes (Death, Hospitalization, Other)
  Sender: FDA-Public Use
  Company Number: JP-PFIZER INC-2018423368

PATIENT
  Age: 9 Decade
  Sex: Female
  Weight: 43 kg

DRUGS (14)
  1. AMLODIPINE BESYLATE [Suspect]
     Active Substance: AMLODIPINE BESYLATE
     Dosage: 5 MG, DAILY (1 TABLET)
     Route: 048
  2. PEROSPIRONE HYDROCHLORIDE [Suspect]
     Active Substance: PEROSPIRONE HYDROCHLORIDE
     Dosage: UNK
     Route: 048
  3. GARENOXACIN MESYLATE [Concomitant]
     Active Substance: GARENOXACIN MESYLATE
     Dosage: 400 MG, DAILY
  4. PREDNISOLONE [Concomitant]
     Active Substance: PREDNISOLONE
     Dosage: 4.5 DF, UNK
  5. LANSOPRAZOLE [Concomitant]
     Active Substance: LANSOPRAZOLE
     Dosage: 1 DF, UNK
  6. ALENDRONATE [Concomitant]
     Active Substance: ALENDRONATE SODIUM
     Dosage: 1 DF, UNK
  7. TELMISARTAN [Concomitant]
     Active Substance: TELMISARTAN
     Dosage: 1 UNK, UNK
  8. KETOPROFEN POULTICE [Concomitant]
     Dosage: 40 MG, UNK
  9. HERBALS [Concomitant]
     Active Substance: HERBALS
     Dosage: 2.5 G,( 3 PACKS)UNK
     Route: 048
  10. ROSUVASTATIN CALCIUM [Concomitant]
     Active Substance: ROSUVASTATIN CALCIUM
     Dosage: 1 UNK, UNK
  11. BIO-THREE [Concomitant]
     Active Substance: HERBALS
     Dosage: 3 UNK, UNK
  12. LINAGLIPTIN [Concomitant]
     Active Substance: LINAGLIPTIN
     Dosage: 1 UNK, UNK
  13. UNSPECIFIED INGREDIENT [Concomitant]
     Active Substance: UNSPECIFIED INGREDIENT
     Dosage: UNK
  14. AMPICILLIN AND SULBACTAM [Concomitant]
     Active Substance: AMPICILLIN SODIUM\SULBACTAM SODIUM
     Dosage: 6 G, DAILY

REACTIONS (1)
  - Altered state of consciousness [Fatal]
